FAERS Safety Report 7501549-5 (Version None)
Quarter: 2011Q2

REPORT INFORMATION
  Report Type: 
  Country: None (occurrence: None)
  Receive Date: 20110524
  Receipt Date: 20110519
  Transmission Date: 20111010
  Serious: Yes (Hospitalization)
  Sender: FDA-Public Use
  Company Number: US-BAYER-2011-043535

PATIENT
  Age: 63 Year
  Sex: Male

DRUGS (2)
  1. MAGNEVIST [Suspect]
     Indication: NUCLEAR MAGNETIC RESONANCE IMAGING
     Dosage: 30 ML, ONCE
     Dates: start: 20110516, end: 20110516
  2. MAGNEVIST [Suspect]
     Indication: ANGIOGRAM

REACTIONS (4)
  - DYSPNOEA [None]
  - NAUSEA [None]
  - FEELING HOT [None]
  - SYNCOPE [None]
